FAERS Safety Report 6240223-2 (Version None)
Quarter: 2009Q2

REPORT INFORMATION
  Report Type: 
  Country: None (occurrence: None)
  Receive Date: 20090623
  Receipt Date: 20090224
  Transmission Date: 20091009
  Serious: No
  Sender: FDA-Public Use
  Company Number: US-ASTRAZENECA-2008UW07419

PATIENT
  Age: 3 Year
  Sex: Male
  Weight: 16.3 kg

DRUGS (4)
  1. PULMICORT RESPULES [Suspect]
     Indication: ASTHMA
     Dosage: 0.5 MG, TWICE DAILY
     Route: 055
     Dates: start: 20080901
  2. PULMICORT RESPULES [Suspect]
     Indication: COUGH
     Dosage: 0.5 MG, TWICE DAILY
     Route: 055
     Dates: start: 20080901
  3. VAGAMOX [Concomitant]
  4. ALBUTEROL [Concomitant]
     Indication: COUGH

REACTIONS (5)
  - COUGH [None]
  - DRUG INEFFECTIVE [None]
  - EAR INFECTION [None]
  - EYE INFECTION [None]
  - RHINORRHOEA [None]
